FAERS Safety Report 17756353 (Version 1)
Quarter: 2020Q2

REPORT INFORMATION
  Report Type: Spontaneous
  Country: US (occurrence: US)
  Receive Date: 20200507
  Receipt Date: 20200507
  Transmission Date: 20200714
  Serious: No
  Sender: FDA-Public Use
  Company Number: US-TEVA-2020-US-1229672

PATIENT
  Sex: Male
  Weight: 86.2 kg

DRUGS (11)
  1. OXYCODONE HYDROCHLORIDE. [Concomitant]
     Active Substance: OXYCODONE HYDROCHLORIDE
  2. TETRABENAZINE. [Concomitant]
     Active Substance: TETRABENAZINE
  3. ALBUTEROL SULFATE HFA [Concomitant]
     Active Substance: ALBUTEROL SULFATE
  4. BACLOFEN. [Concomitant]
     Active Substance: BACLOFEN
  5. METOPROLOL SUCCINATE. [Concomitant]
     Active Substance: METOPROLOL SUCCINATE
  6. AUSTEDO [Suspect]
     Active Substance: DEUTETRABENAZINE
     Indication: DYSTONIA
     Dosage: 36 MILLIGRAM DAILY;
     Route: 048
     Dates: start: 20200415
  7. HYDROCHLOROTHIAZIDE. [Concomitant]
     Active Substance: HYDROCHLOROTHIAZIDE
  8. SPIRIVA RESPIMAT [Concomitant]
     Active Substance: TIOTROPIUM BROMIDE
  9. VITAMIN D-400 [Concomitant]
  10. MAGNESIUM [Concomitant]
     Active Substance: MAGNESIUM
  11. VALIUM [Concomitant]
     Active Substance: DIAZEPAM

REACTIONS (4)
  - Product use in unapproved indication [Unknown]
  - Discomfort [Unknown]
  - Pain [Unknown]
  - Off label use [Unknown]
